FAERS Safety Report 25661860 (Version 2)
Quarter: 2025Q4

REPORT INFORMATION
  Report Type: Report from Study
  Country: US (occurrence: US)
  Receive Date: 20250809
  Receipt Date: 20251010
  Transmission Date: 20260118
  Serious: No
  Sender: TEVA
  Company Number: US-TEVA-VS-3359456

PATIENT
  Age: 44 Year
  Sex: Male

DRUGS (1)
  1. AUSTEDO [Suspect]
     Active Substance: DEUTETRABENAZINE
     Indication: Product used for unknown indication
     Route: 048

REACTIONS (2)
  - Diarrhoea [Not Recovered/Not Resolved]
  - Feeling hot [Unknown]
